FAERS Safety Report 5698440-6 (Version None)
Quarter: 2008Q2

REPORT INFORMATION
  Report Type: 
  Country: None (occurrence: None)
  Receive Date: 20080408
  Receipt Date: 20060925
  Transmission Date: 20081010
  Serious: Yes (Hospitalization, Other)
  Sender: FDA-Public Use
  Company Number: US-BAYER-US-2005-003388

PATIENT
  Age: 48 Year
  Sex: Female
  Weight: 54 kg

DRUGS (5)
  1. MIRENA [Suspect]
     Indication: MENORRHAGIA
     Route: 015
     Dates: start: 20021016, end: 20050520
  2. CLIMARA [Suspect]
     Indication: HORMONE REPLACEMENT THERAPY
     Route: 062
     Dates: start: 20030101, end: 20050401
  3. VENTOLIN [Concomitant]
     Indication: ASTHMA
     Dosage: UNIT DOSE: 2 PUFF
     Route: 055
     Dates: start: 19800101
  4. AMERGE [Concomitant]
     Indication: MIGRAINE
  5. ZANTAC [Concomitant]
     Indication: GASTROOESOPHAGEAL REFLUX DISEASE

REACTIONS (4)
  - BILIARY ADENOMA [None]
  - CONGENITAL CYSTIC KIDNEY DISEASE [None]
  - HEPATIC ADENOMA [None]
  - POLYCYSTIC LIVER DISEASE [None]
